FAERS Safety Report 19386814 (Version 2)
Quarter: 2021Q2

REPORT INFORMATION
  Report Type: Spontaneous
  Country: DE (occurrence: DE)
  Receive Date: 20210608
  Receipt Date: 20210619
  Transmission Date: 20210717
  Serious: No
  Sender: FDA-Public Use
  Company Number: DE-LUPIN PHARMACEUTICALS INC.-2021-08575

PATIENT
  Sex: Male
  Weight: 72 kg

DRUGS (1)
  1. SILDENAFIL?HORMOSAN [Suspect]
     Active Substance: SILDENAFIL CITRATE
     Dosage: UNK, FILM COATED TABLET
     Route: 065

REACTIONS (1)
  - Drug ineffective [Unknown]
